FAERS Safety Report 8576493-5 (Version None)
Quarter: 2012Q3

REPORT INFORMATION
  Report Type: 
  Country: None (occurrence: None)
  Receive Date: 20120725
  Receipt Date: 20120712
  Transmission Date: 20120928
  Serious: Yes (Hospitalization, Other)
  Sender: FDA-Public Use
  Company Number: 2011-000188

PATIENT
  Age: 54 Year
  Sex: Female

DRUGS (16)
  1. FOSAMAX [Suspect]
     Indication: OSTEOPENIA
     Dosage: 70 MG ONCE WEEKLY, ORAL
     Route: 048
     Dates: start: 20020801, end: 20061120
  2. FOSAMAX [Suspect]
     Indication: OSTEOPOROSIS
     Dosage: 70 MG ONCE WEEKLY, ORAL
     Route: 048
     Dates: start: 20020801, end: 20061120
  3. VITAMIS /90003601/) [Concomitant]
  4. ASPIRIN [Concomitant]
  5. CALTRATE + D /00944291/ (CALCIUM CARBONATE, COLECALCIFEROL) [Concomitant]
  6. VITAMIN C /00008001/ (ASCORBIC ACID) [Concomitant]
  7. SIMVASTATIN [Concomitant]
  8. CALCIUM CITRATE (CALCIUM CITRATE) [Concomitant]
  9. ACTONEL [Suspect]
     Indication: OSTEOPOROSIS
     Dosage: 150 MG ONCE MONTHLY, ORAL
     Route: 048
     Dates: start: 20081230, end: 20100301
  10. ACTONEL [Suspect]
     Indication: OSTEOPENIA
     Dosage: 150 MG ONCE MONTHLY, ORAL
     Route: 048
     Dates: start: 20081230, end: 20100301
  11. COLECALCIFEROL (COLECALCIFEROL) [Concomitant]
  12. NIACIN (NICOTINIC AICD) [Concomitant]
  13. ACTONEL [Suspect]
     Indication: OSTEOPENIA
     Dosage: 35 MG ONCE WEEKLY, ORAL
     Route: 048
     Dates: start: 20061101, end: 20080801
  14. ACTONEL [Suspect]
     Indication: OSTEOPOROSIS
     Dosage: 35 MG ONCE WEEKLY, ORAL
     Route: 048
     Dates: start: 20061101, end: 20080801
  15. VITAMIN E /00110501/ (TOCOPHEROL) [Concomitant]
  16. FISH OIL (FISH OIL) [Concomitant]

REACTIONS (8)
  - PAIN [None]
  - BONE DISORDER [None]
  - FEMUR FRACTURE [None]
  - FRACTURE DISPLACEMENT [None]
  - ATYPICAL FEMUR FRACTURE [None]
  - STRESS FRACTURE [None]
  - FALL [None]
  - LOW TURNOVER OSTEOPATHY [None]
